FAERS Safety Report 4987637-6 (Version None)
Quarter: 2006Q2

REPORT INFORMATION
  Report Type: 
  Country: None (occurrence: None)
  Receive Date: 20060426
  Receipt Date: 20060418
  Transmission Date: 20061013
  Serious: Yes (Disabling)
  Sender: FDA-Public Use
  Company Number: 2006053423

PATIENT
  Age: 37 Year
  Sex: Female
  Weight: 65 kg

DRUGS (3)
  1. LYRICA [Suspect]
     Indication: INTERVERTEBRAL DISC PROTRUSION
     Dosage: 150 MG), ORAL
     Route: 048
     Dates: start: 20050701, end: 20060208
  2. LYRICA [Suspect]
     Indication: RADICULOPATHY
     Dosage: 150 MG), ORAL
     Route: 048
     Dates: start: 20050701, end: 20060208
  3. MARVELON (DESOGESTREL, ETHINYLESTRADIOL) [Concomitant]

REACTIONS (8)
  - ANXIETY [None]
  - DISTURBANCE IN ATTENTION [None]
  - HYPERHIDROSIS [None]
  - MEMORY IMPAIRMENT [None]
  - PALPITATIONS [None]
  - SENSE OF OPPRESSION [None]
  - TEARFULNESS [None]
  - WEIGHT INCREASED [None]
